FAERS Safety Report 7528304-4 (Version None)
Quarter: 2011Q2

REPORT INFORMATION
  Report Type: 
  Country: None (occurrence: None)
  Receive Date: 20110607
  Receipt Date: 20100609
  Transmission Date: 20111010
  Serious: No
  Sender: FDA-Public Use
  Company Number: US-ASTRAZENECA-2010SE27677

PATIENT
  Sex: Female

DRUGS (11)
  1. PRILOSEC OTC [Suspect]
     Indication: FAT INTOLERANCE
     Route: 048
     Dates: end: 20100527
  2. OMEPRAZOLE [Suspect]
     Route: 048
  3. VITAMINS [Concomitant]
  4. PRILOSEC OTC [Suspect]
     Indication: ABDOMINAL DISCOMFORT
     Route: 048
     Dates: end: 20100527
  5. MIRALAX [Concomitant]
  6. RAMIPRIL [Concomitant]
  7. CALCIUM CARBONATE [Concomitant]
  8. PRILOSEC [Suspect]
     Route: 048
  9. PRILOSEC OTC [Suspect]
     Indication: IRRITABLE BOWEL SYNDROME
     Route: 048
     Dates: end: 20100527
  10. MAXZIDE [Concomitant]
  11. VITAMIN D [Concomitant]

REACTIONS (6)
  - ABDOMINAL PAIN UPPER [None]
  - ABDOMINAL PAIN [None]
  - DRUG INEFFECTIVE [None]
  - BACTERIAL INFECTION [None]
  - SINUS DISORDER [None]
  - DIZZINESS [None]
